FAERS Safety Report 7331741-4 (Version None)
Quarter: 2011Q1

REPORT INFORMATION
  Report Type: 
  Country: None (occurrence: None)
  Receive Date: 20110304
  Receipt Date: 20110222
  Transmission Date: 20110831
  Serious: Yes (Hospitalization)
  Sender: FDA-Public Use
  Company Number: PHFR2011GB01573

PATIENT
  Age: 65 Year
  Sex: Female

DRUGS (10)
  1. MOVELAT [Concomitant]
  2. MIGRALAVE [Concomitant]
  3. CLIMAVAL [Suspect]
     Dosage: 1 MG, QD
     Route: 048
  4. MAGNESIUM HYDROXIDE [Concomitant]
  5. HYPROMELLOSE [Concomitant]
  6. QUININE BISULPHATE [Concomitant]
  7. IBUPROFEN [Concomitant]
  8. OMEPRAZOLE [Concomitant]
  9. PARACETAMOL [Concomitant]
  10. SCHERIPROCT [Concomitant]

REACTIONS (3)
  - CHEST PAIN [None]
  - DYSPNOEA [None]
  - PULMONARY EMBOLISM [None]
